FAERS Safety Report 12208110 (Version 1)
Quarter: 2016Q1

REPORT INFORMATION
  Report Type: Report from Study
  Country: BR (occurrence: BR)
  Receive Date: 20160324
  Receipt Date: 20160324
  Transmission Date: 20160526
  Serious: Yes (Hospitalization, Other)
  Sender: FDA-Public Use
  Company Number: US-ASTRAZENECA-2016SE29752

PATIENT
  Age: 522 Day
  Sex: Male
  Weight: 7.7 kg

DRUGS (1)
  1. SYNAGIS [Suspect]
     Active Substance: PALIVIZUMAB
     Indication: HEART DISEASE CONGENITAL
     Route: 030
     Dates: start: 20150507, end: 201507

REACTIONS (22)
  - Pneumonia [Not Recovered/Not Resolved]
  - Fatigue [Not Recovered/Not Resolved]
  - Diarrhoea [Recovered/Resolved]
  - Respiratory syncytial virus infection [Unknown]
  - Infection [Not Recovered/Not Resolved]
  - Hypophagia [Unknown]
  - Vomiting [Recovered/Resolved]
  - Lip discolouration [Unknown]
  - Wheezing [Not Recovered/Not Resolved]
  - Myocardial infarction [Unknown]
  - Asthenia [Unknown]
  - Weight decreased [Unknown]
  - Dehydration [Recovered/Resolved]
  - White blood cell count increased [Unknown]
  - Sepsis [Not Recovered/Not Resolved]
  - Increased bronchial secretion [Recovering/Resolving]
  - Apathy [Unknown]
  - Peripheral coldness [Unknown]
  - Oxygen saturation decreased [Not Recovered/Not Resolved]
  - Pyrexia [Recovered/Resolved]
  - Discomfort [Unknown]
  - Feeling hot [Unknown]

NARRATIVE: CASE EVENT DATE: 20160304
